FAERS Safety Report 19455356 (Version 1)
Quarter: 2021Q2

REPORT INFORMATION
  Report Type: Report from Study
  Country: None (occurrence: DE)
  Receive Date: 20210623
  Receipt Date: 20210623
  Transmission Date: 20210717
  Serious: Yes (Hospitalization, Other)
  Sender: FDA-Public Use
  Company Number: DE-ABBVIE-21K-062-3957416-00

PATIENT
  Age: 81 Year
  Sex: Female
  Weight: 83 kg

DRUGS (8)
  1. SKYRIZI [Suspect]
     Active Substance: RISANKIZUMAB-RZAA
     Indication: PSORIATIC ARTHROPATHY
  2. XELEVIA [Concomitant]
     Active Substance: SITAGLIPTIN PHOSPHATE
     Indication: PRODUCT USED FOR UNKNOWN INDICATION
  3. SKYRIZI [Suspect]
     Active Substance: RISANKIZUMAB-RZAA
     Indication: PSORIASIS
     Route: 058
     Dates: start: 202007
  4. METAMIZOL [Concomitant]
     Active Substance: METAMIZOLE SODIUM
     Indication: PRODUCT USED FOR UNKNOWN INDICATION
  5. SKYRIZI [Suspect]
     Active Substance: RISANKIZUMAB-RZAA
     Indication: PSORIASIS
  6. PENTALONG [Concomitant]
     Active Substance: PENTAERYTHRITOL TETRANITRATE
     Indication: PRODUCT USED FOR UNKNOWN INDICATION
  7. LOSARTAN. [Concomitant]
     Active Substance: LOSARTAN
     Indication: PRODUCT USED FOR UNKNOWN INDICATION
  8. GABAPENTIN. [Concomitant]
     Active Substance: GABAPENTIN
     Indication: PRODUCT USED FOR UNKNOWN INDICATION

REACTIONS (41)
  - Hepatocellular carcinoma [Unknown]
  - Chronotropic incompetence [Unknown]
  - Liver disorder [Unknown]
  - Red blood cell count decreased [Recovered/Resolved]
  - Blood chloride increased [Unknown]
  - Blood alkaline phosphatase increased [Recovered/Resolved]
  - Fibrin D dimer increased [Unknown]
  - Chronic obstructive pulmonary disease [Unknown]
  - Obesity [Unknown]
  - Hepatic steatosis [Unknown]
  - Lung diffusion disorder [Unknown]
  - Diastolic dysfunction [Unknown]
  - Renal impairment [Unknown]
  - Hypertensive heart disease [Unknown]
  - Cardiac valve disease [Unknown]
  - Reticulocyte count increased [Unknown]
  - Alanine aminotransferase increased [Unknown]
  - Blood fibrinogen decreased [Unknown]
  - Splenomegaly [Unknown]
  - Obstructive airways disorder [Unknown]
  - Coronary artery disease [Unknown]
  - Granulocyte count decreased [Unknown]
  - Blood urea increased [Recovered/Resolved]
  - Dyspnoea exertional [Recovered/Resolved]
  - Red blood cell count decreased [Unknown]
  - Glycosylated haemoglobin increased [Unknown]
  - Low density lipoprotein increased [Unknown]
  - Gamma-glutamyltransferase increased [Unknown]
  - Breath sounds abnormal [Unknown]
  - Hepatic mass [Unknown]
  - Cardiac failure [Unknown]
  - Obstructive airways disorder [Unknown]
  - Blood creatinine increased [Unknown]
  - Dyspnoea [Unknown]
  - Lung disorder [Unknown]
  - Platelet count decreased [Unknown]
  - Angina pectoris [Unknown]
  - Blood glucose increased [Unknown]
  - C-reactive protein increased [Unknown]
  - General physical health deterioration [Unknown]
  - Aspartate aminotransferase [Unknown]

NARRATIVE: CASE EVENT DATE: 20210312
